FAERS Safety Report 23548578 (Version 1)
Quarter: 2024Q1

REPORT INFORMATION
  Report Type: Report from Study
  Country: US (occurrence: US)
  Receive Date: 20240221
  Receipt Date: 20240221
  Transmission Date: 20240410
  Serious: Yes (Other)
  Sender: FDA-Public Use
  Company Number: US-GILEAD-2024-0662068

PATIENT
  Sex: Female

DRUGS (2)
  1. SACITUZUMAB GOVITECAN-HZIY [Suspect]
     Active Substance: SACITUZUMAB GOVITECAN-HZIY
     Indication: Triple negative breast cancer
     Dosage: 10 MG/KG, DAY 1 AND DAY 8 (21 DAY TREATMENT CYCLE) INITIALLY BUT THEN DOSE REDUCED.
     Route: 042
     Dates: start: 20230105
  2. SACITUZUMAB GOVITECAN-HZIY [Suspect]
     Active Substance: SACITUZUMAB GOVITECAN-HZIY
     Dosage: REDUCED DOSE-AT 80 PERCENT OF REGULAR DOSE
     Route: 065
     Dates: start: 202301

REACTIONS (14)
  - Metastases to spine [Not Recovered/Not Resolved]
  - Metastases to bone [Not Recovered/Not Resolved]
  - Ill-defined disorder [Not Recovered/Not Resolved]
  - Aphasia [Not Recovered/Not Resolved]
  - Alopecia [Not Recovered/Not Resolved]
  - Weight increased [Not Recovered/Not Resolved]
  - Fatigue [Not Recovered/Not Resolved]
  - Blood test abnormal [Unknown]
  - Memory impairment [Not Recovered/Not Resolved]
  - Abdominal pain upper [Not Recovered/Not Resolved]
  - Constipation [Not Recovered/Not Resolved]
  - Diarrhoea [Not Recovered/Not Resolved]
  - Stomatitis [Not Recovered/Not Resolved]
  - Gingival pain [Not Recovered/Not Resolved]

NARRATIVE: CASE EVENT DATE: 20230101
